FAERS Safety Report 4613256-7 (Version None)
Quarter: 2005Q1

REPORT INFORMATION
  Report Type: 
  Country: None (occurrence: None)
  Receive Date: 20050315
  Receipt Date: 20050301
  Transmission Date: 20050727
  Serious: Yes (Hospitalization, Disabling, Other)
  Sender: FDA-Public Use
  Company Number: EWC050242860

PATIENT
  Age: 40 Year
  Sex: Male

DRUGS (22)
  1. XIGRIS [Suspect]
     Indication: MULTI-ORGAN FAILURE
     Dosage: 24 UG/KG/HR
     Dates: start: 20050116, end: 20050120
  2. XIGRIS [Suspect]
     Indication: SEPSIS
     Dosage: 24 UG/KG/HR
     Dates: start: 20050116, end: 20050120
  3. RANITIDINE [Concomitant]
  4. VITAMIN K [Concomitant]
  5. MEROPENEM [Concomitant]
  6. AZITHROMYCIN [Concomitant]
  7. GRANULOKINE [Concomitant]
  8. ACTOCORTIN (DI-HYDROCORTISONE SODIUM PHOSPHATE) [Concomitant]
  9. NORADRENALINE [Concomitant]
  10. INSULIN [Concomitant]
  11. MIDAZOLAM [Concomitant]
  12. FENTANYL [Concomitant]
  13. MORPHINE [Concomitant]
  14. DOLANTINE (PETHIDINE HYDROCHLORIDE) [Concomitant]
  15. PRIMPERAN ELIXIR [Concomitant]
  16. FUROSEMIDE [Concomitant]
  17. DUPHALAC [Concomitant]
  18. TAZOCEL [Concomitant]
  19. CIPROFLOXACIN [Concomitant]
  20. CASPOFUNGIN [Concomitant]
  21. FRAXIPARINA (NADROPARIN CALCIUM) [Concomitant]
  22. AMIODARONE [Concomitant]

REACTIONS (10)
  - ASPERGILLOSIS [None]
  - BLINDNESS [None]
  - CATHETER RELATED COMPLICATION [None]
  - METABOLIC DISORDER [None]
  - NEUROTOXICITY [None]
  - OPTIC ATROPHY [None]
  - QUADRIPARESIS [None]
  - SPUTUM CULTURE POSITIVE [None]
  - THROMBOCYTOPENIA [None]
  - UNRESPONSIVE TO PAIN STIMULI [None]
